FAERS Safety Report 7794394-7 (Version None)
Quarter: 2011Q4

REPORT INFORMATION
  Report Type: 
  Country: None (occurrence: None)
  Receive Date: 20111004
  Receipt Date: 20110111
  Transmission Date: 20120403
  Serious: No
  Sender: FDA-Public Use
  Company Number: US-BAYER-2011-004998

PATIENT
  Sex: Male

DRUGS (1)
  1. LEVITRA [Suspect]
     Dosage: 1 DF, ONCE
     Route: 048
     Dates: start: 20110110

REACTIONS (2)
  - PRURITUS [None]
  - URTICARIA [None]
